FAERS Safety Report 4754838-1 (Version None)
Quarter: 2005Q3

REPORT INFORMATION
  Report Type: 
  Country: None (occurrence: None)
  Receive Date: 20050829
  Receipt Date: 20050309
  Transmission Date: 20060218
  Serious: Yes (Death, Hospitalization, Other)
  Sender: FDA-Public Use
  Company Number: US-MERCK-0503USA02208

PATIENT
  Age: 67 Year
  Sex: Female
  Weight: 77 kg

DRUGS (24)
  1. DICYCLOMINE HYDROCHLORIDE [Concomitant]
     Route: 065
  2. ZITHROMAX [Concomitant]
     Route: 065
  3. NEURONTIN [Concomitant]
     Route: 065
  4. METOCLOPRAMIDE [Concomitant]
     Route: 065
  5. LEVAQUIN [Concomitant]
     Route: 065
  6. ALPRAZOLAM [Concomitant]
     Route: 065
  7. BENZONATATE [Concomitant]
     Route: 065
  8. VIOXX [Suspect]
     Indication: ANALGESIC EFFECT
     Route: 048
     Dates: start: 20011107, end: 20030101
  9. VIOXX [Suspect]
     Indication: ARTHRITIS
     Route: 048
     Dates: start: 20011107, end: 20030101
  10. ASPIRIN [Concomitant]
     Route: 065
  11. FOSAMAX [Concomitant]
     Route: 048
  12. PREMPRO [Concomitant]
     Route: 065
  13. COMBIVENT [Concomitant]
     Route: 055
  14. FUROSEMIDE [Concomitant]
     Route: 065
  15. ACIPHEX [Concomitant]
     Route: 065
  16. AVAPRO [Concomitant]
     Route: 065
  17. ACETAMINOPHEN AND CODEINE [Concomitant]
     Route: 065
  18. IBUPROFEN [Concomitant]
     Route: 065
  19. ENDOCET [Concomitant]
     Route: 065
  20. HYDROCODONE BITARTRATE [Concomitant]
     Route: 065
  21. OXYCONTIN [Concomitant]
     Route: 065
  22. HYDROCHLOROTHIAZIDE [Concomitant]
     Route: 048
  23. GUAIFENEX LA [Concomitant]
     Route: 065
  24. ATUSS MS [Concomitant]
     Route: 065

REACTIONS (5)
  - CARDIAC DISORDER [None]
  - CARDIAC FAILURE [None]
  - CEREBROVASCULAR ACCIDENT [None]
  - DEATH [None]
  - PLEURAL EFFUSION [None]
